FAERS Safety Report 8918437 (Version 1)
Quarter: 2012Q4

REPORT INFORMATION
  Report Type: 
  Country: US (occurrence: US)
  Receive Date: 20121120
  Receipt Date: 20121120
  Transmission Date: 20130627
  Serious: No
  Sender: FDA-Public Use
  Company Number: US-ASTRAZENECA-2012SE27002

PATIENT
  Age: 33 Month
  Sex: Male
  Weight: 13.6 kg

DRUGS (3)
  1. NEXIUM [Suspect]
     Indication: GASTROOESOPHAGEAL REFLUX DISEASE
     Route: 048
     Dates: start: 201107, end: 201112
  2. NEXIUM [Suspect]
     Indication: GASTROOESOPHAGEAL REFLUX DISEASE
     Dosage: 10MG BID EVERY OTHER DAY
     Route: 048
     Dates: start: 201112, end: 201112
  3. NEXIUM [Suspect]
     Indication: GASTROOESOPHAGEAL REFLUX DISEASE
     Dosage: 10MG BID QD
     Route: 048
     Dates: start: 201112

REACTIONS (5)
  - Hiccups [Unknown]
  - Pain [Unknown]
  - Vomiting [Unknown]
  - Intentional drug misuse [Unknown]
  - Intentional drug misuse [Unknown]
